FAERS Safety Report 7604099-0 (Version None)
Quarter: 2011Q3

REPORT INFORMATION
  Report Type: 
  Country: None (occurrence: None)
  Receive Date: 20110711
  Receipt Date: 20110711
  Transmission Date: 20111222
  Serious: Yes (Hospitalization, Other)
  Sender: FDA-Public Use
  Company Number: None

PATIENT
  Age: 46 Year
  Sex: Male
  Weight: 86.1834 kg

DRUGS (1)
  1. PROPECIA [Suspect]
     Indication: ANDROGENETIC ALOPECIA
     Dosage: 1 MG A DAY PO
     Route: 048
     Dates: start: 19990201, end: 20090201

REACTIONS (4)
  - LOSS OF LIBIDO [None]
  - DEPRESSION [None]
  - GENITAL HYPOAESTHESIA [None]
  - ERECTILE DYSFUNCTION [None]
